FAERS Safety Report 5415593-5 (Version None)
Quarter: 2007Q3

REPORT INFORMATION
  Report Type: 
  Country: None (occurrence: None)
  Receive Date: 20070815
  Receipt Date: 20070731
  Transmission Date: 20080115
  Serious: Yes (Hospitalization, Other)
  Sender: FDA-Public Use
  Company Number: JP-ROCHE-486166

PATIENT
  Age: 44 Year
  Sex: Female
  Weight: 71 kg

DRUGS (3)
  1. PEGASYS [Suspect]
     Route: 058
     Dates: start: 20061108, end: 20061108
  2. PEGASYS [Suspect]
     Route: 058
     Dates: start: 20061122, end: 20070131
  3. PEGASYS [Suspect]
     Route: 058
     Dates: start: 20070208, end: 20070308

REACTIONS (5)
  - DEPRESSION [None]
  - NEUTROPENIA [None]
  - OVERDOSE [None]
  - SCHIZOPHRENIA [None]
  - SUICIDE ATTEMPT [None]
